FAERS Safety Report 4452460-8 (Version None)
Quarter: 2004Q3

REPORT INFORMATION
  Report Type: 
  Country: None (occurrence: None)
  Receive Date: 20040916
  Receipt Date: 20040903
  Transmission Date: 20050211
  Serious: Yes (Other)
  Sender: FDA-Public Use
  Company Number: JP-2004-031318

PATIENT
  Age: 38 Year
  Sex: Female

DRUGS (2)
  1. BETAFERON (INTERFERON BETA 1B) INJECTION 250 UG [Suspect]
     Indication: MULTIPLE SCLEROSIS
     Dosage: 8 MIU EVERY 2 D SUBCUTANEOUS
     Route: 058
     Dates: start: 20020731, end: 20030211
  2. METHYCOBAL (MECOBALAMIN) [Concomitant]

REACTIONS (2)
  - COUGH [None]
  - INTERSTITIAL LUNG DISEASE [None]
